FAERS Safety Report 16151433 (Version 1)
Quarter: 2019Q2

REPORT INFORMATION
  Report Type: Spontaneous
  Country: US (occurrence: US)
  Receive Date: 20190403
  Receipt Date: 20190403
  Transmission Date: 20190711
  Serious: No
  Sender: FDA-Public Use
  Company Number: US-UPSHER-SMITH LABORATORIES, LLC-2018USL00151

PATIENT
  Age: 89 Year
  Sex: Male
  Weight: 90.7 kg

DRUGS (3)
  1. PREVALITE [Suspect]
     Active Substance: CHOLESTYRAMINE
     Indication: ABNORMAL FAECES
     Dosage: 1 PACKET, 2X/DAY
     Route: 048
     Dates: start: 201803, end: 201803
  2. INSULIN [Concomitant]
     Active Substance: INSULIN NOS
  3. OTHER UNSPECIFIED MEDICATIONS [Concomitant]
     Active Substance: UNSPECIFIED INGREDIENT

REACTIONS (1)
  - Retching [Recovered/Resolved]

NARRATIVE: CASE EVENT DATE: 201803
